FAERS Safety Report 5494093-0 (Version None)
Quarter: 2007Q4

REPORT INFORMATION
  Report Type: 
  Country: None (occurrence: None)
  Receive Date: 20071023
  Receipt Date: 20071012
  Transmission Date: 20080405
  Serious: Yes (Other)
  Sender: FDA-Public Use
  Company Number: US-PFIZER INC-2007085929

PATIENT
  Sex: Female
  Weight: 95.454 kg

DRUGS (11)
  1. LIPITOR [Suspect]
     Indication: BLOOD CHOLESTEROL
  2. AMLODIPINE [Suspect]
     Indication: HYPERTENSION
  3. ARTHROTEC [Suspect]
  4. NORVASC [Suspect]
     Indication: HYPERTENSION
  5. CLINDAMYCIN HCL [Suspect]
  6. PREDNISONE [Suspect]
     Route: 048
  7. SYNTHROID [Concomitant]
  8. TRIAMTERENE AND HYDROCHLOROTHIAZIDE [Concomitant]
  9. TOPROL-XL [Concomitant]
  10. PROPAFENONE HCL [Concomitant]
  11. WARFARIN SODIUM [Concomitant]

REACTIONS (9)
  - ATRIAL FIBRILLATION [None]
  - BODY HEIGHT DECREASED [None]
  - HYPERSENSITIVITY [None]
  - HYPERTENSION [None]
  - MYALGIA [None]
  - PRURITUS [None]
  - RHINORRHOEA [None]
  - SKIN DISORDER [None]
  - TINNITUS [None]
